FAERS Safety Report 4995672-7 (Version None)
Quarter: 2006Q2

REPORT INFORMATION
  Report Type: 
  Country: None (occurrence: None)
  Receive Date: 20060504
  Receipt Date: 20060419
  Transmission Date: 20061013
  Serious: Yes (Death)
  Sender: FDA-Public Use
  Company Number: 2006BH008388

PATIENT
  Age: 68 Year
  Sex: Female

DRUGS (7)
  1. CEFTRIAXONE [Suspect]
     Indication: PNEUMONIA
     Dosage: 1 GM;ONCE;IV
     Route: 042
     Dates: start: 20060418, end: 20060418
  2. PREMARIN [Concomitant]
  3. PERCOCET [Concomitant]
  4. PREVACID [Concomitant]
  5. BIEST [Concomitant]
  6. VICODIN [Concomitant]
  7. ZYRTEC-D 12 HOUR [Concomitant]

REACTIONS (3)
  - ANAPHYLACTIC SHOCK [None]
  - CARDIOPULMONARY FAILURE [None]
  - DYSPNOEA [None]
